FAERS Safety Report 5815406-3 (Version None)
Quarter: 2008Q3

REPORT INFORMATION
  Report Type: 
  Country: None (occurrence: None)
  Receive Date: 20080718
  Receipt Date: 20080707
  Transmission Date: 20090109
  Serious: Yes (Other)
  Sender: FDA-Public Use
  Company Number: US-PFIZER INC-2008048882

PATIENT
  Age: 63 Year
  Sex: Female

DRUGS (3)
  1. GEODON [Suspect]
     Indication: SCHIZOAFFECTIVE DISORDER
  2. CELEXA [Concomitant]
  3. DESYREL [Concomitant]

REACTIONS (3)
  - DYSKINESIA [None]
  - TARDIVE DYSKINESIA [None]
  - WALKING AID USER [None]
